FAERS Safety Report 7788124-2 (Version None)
Quarter: 2011Q3

REPORT INFORMATION
  Report Type: 
  Country: None (occurrence: None)
  Receive Date: 20110927
  Receipt Date: 20110921
  Transmission Date: 20111222
  Serious: Yes (Death, Hospitalization, Other)
  Sender: FDA-Public Use
  Company Number: 2010US004298

PATIENT
  Age: 58 Year
  Sex: Female
  Weight: 112 kg

DRUGS (6)
  1. RAPAMUNE [Suspect]
     Indication: LUNG TRANSPLANT
  2. CELLCEPT [Concomitant]
  3. VFEND [Concomitant]
  4. PROGRAF [Suspect]
     Indication: LUNG TRANSPLANT
     Dosage: 1 MG, UID/QD, ORAL : 0.5 MG, BID, ORAL
     Route: 048
     Dates: start: 20061201
  5. PROGRAF [Suspect]
     Indication: LUNG TRANSPLANT
     Dosage: 1 MG, UID/QD, ORAL : 0.5 MG, BID, ORAL
     Route: 048
     Dates: end: 20101219
  6. VALCYTE [Concomitant]

REACTIONS (16)
  - PLEURAL EFFUSION [None]
  - DEHYDRATION [None]
  - RENAL FAILURE [None]
  - LUNG TRANSPLANT REJECTION [None]
  - OBLITERATIVE BRONCHIOLITIS [None]
  - TOXICITY TO VARIOUS AGENTS [None]
  - PNEUMONIA [None]
  - PNEUMONIA VIRAL [None]
  - FALL [None]
  - PARVOVIRUS INFECTION [None]
  - INFECTION SUSCEPTIBILITY INCREASED [None]
  - HAEMATOMA [None]
  - RENAL FAILURE ACUTE [None]
  - LUNG NEOPLASM [None]
  - OFF LABEL USE [None]
  - PAIN [None]
